FAERS Safety Report 15423218 (Version 1)
Quarter: 2018Q3

REPORT INFORMATION
  Report Type: Spontaneous
  Country: AU (occurrence: AU)
  Receive Date: 20180925
  Receipt Date: 20180925
  Transmission Date: 20181010
  Serious: Yes (Life-Threatening)
  Sender: FDA-Public Use
  Company Number: AU-NAPPMUNDI-GBR-2018-0059469

PATIENT
  Sex: Female

DRUGS (36)
  1. MAXOLON [Suspect]
     Active Substance: METOCLOPRAMIDE HYDROCHLORIDE
     Indication: PRODUCT USED FOR UNKNOWN INDICATION
     Route: 065
  2. OXYCODONE HYDROCHLORIDE. [Concomitant]
     Active Substance: OXYCODONE HYDROCHLORIDE
  3. LASIX [Concomitant]
     Active Substance: FUROSEMIDE
  4. MEGAFOL [Concomitant]
     Active Substance: FOLIC ACID
  5. OMNARIS [Concomitant]
     Active Substance: CICLESONIDE
  6. RIVOTRIL [Concomitant]
     Active Substance: CLONAZEPAM
  7. VENTOLIN [Concomitant]
     Active Substance: ALBUTEROL SULFATE
  8. CALTRATE [Concomitant]
     Active Substance: CALCIUM CARBONATE
  9. CLOPIDOGREL [Concomitant]
     Active Substance: CLOPIDOGREL BISULFATE
  10. ENDONE [Concomitant]
     Active Substance: OXYCODONE HYDROCHLORIDE
  11. KENACOMB OTIC [Concomitant]
  12. NEXIUM [Concomitant]
     Active Substance: ESOMEPRAZOLE MAGNESIUM
  13. TRYPTOPHAN                         /00215101/ [Concomitant]
     Active Substance: TRYPTOPHAN
  14. TARGIN [Suspect]
     Active Substance: NALOXONE HYDROCHLORIDE\OXYCODONE HYDROCHLORIDE
     Indication: PRODUCT USED FOR UNKNOWN INDICATION
     Route: 048
  15. PANADOL [Concomitant]
     Active Substance: ACETAMINOPHEN
  16. OPTIVE [Concomitant]
     Active Substance: CARBOXYMETHYLCELLULOSE SODIUM\GLYCERIN
  17. ALDACTONE [Suspect]
     Active Substance: SPIRONOLACTONE
     Indication: PRODUCT USED FOR UNKNOWN INDICATION
     Route: 065
  18. LYRICA [Suspect]
     Active Substance: PREGABALIN
     Indication: SCIATICA
  19. DIPROSONE [Concomitant]
     Active Substance: BETAMETHASONE DIPROPIONATE
  20. NAPHAZOLINE [Concomitant]
     Active Substance: NAPHAZOLINE\NAPHAZOLINE HYDROCHLORIDE
  21. LYRICA [Suspect]
     Active Substance: PREGABALIN
     Indication: BACK PAIN
     Dosage: UNK
     Route: 048
     Dates: start: 2013
  22. GABAPENTIN. [Concomitant]
     Active Substance: GABAPENTIN
  23. METHOTREXATE. [Concomitant]
     Active Substance: METHOTREXATE
  24. ONDANSETRON [Concomitant]
     Active Substance: ONDANSETRON
  25. PANADEINE                          /00116401/ [Concomitant]
     Active Substance: ACETAMINOPHEN\CODEINE PHOSPHATE
  26. SERETIDE [Concomitant]
     Active Substance: FLUTICASONE PROPIONATE\SALMETEROL XINAFOATE
  27. SPIRIVA [Concomitant]
     Active Substance: TIOTROPIUM BROMIDE MONOHYDRATE
  28. ERYTHROMYCIN. [Suspect]
     Active Substance: ERYTHROMYCIN
     Indication: PRODUCT USED FOR UNKNOWN INDICATION
     Route: 065
  29. ALEPAM [Concomitant]
     Active Substance: OXAZEPAM
  30. ASPIRIN. [Concomitant]
     Active Substance: ASPIRIN
  31. SLOW?K [Concomitant]
     Active Substance: POTASSIUM CHLORIDE
  32. STEMETIL                           /00013301/ [Concomitant]
     Active Substance: PROCHLORPERAZINE
  33. ALLEGRON [Concomitant]
  34. VITAMIN B12 [Concomitant]
     Active Substance: CYANOCOBALAMIN
  35. PLAQUENIL                          /00072602/ [Concomitant]
     Active Substance: HYDROXYCHLOROQUINE DIPHOSPHATE
  36. SANDRENA [Concomitant]
     Active Substance: ESTRADIOL

REACTIONS (7)
  - Swollen tongue [Recovered/Resolved]
  - Somnolence [Unknown]
  - Rash [Recovered/Resolved]
  - Throat tightness [Recovered/Resolved]
  - Impulse-control disorder [Unknown]
  - Paraesthesia oral [Recovered/Resolved]
  - Angioedema [Recovered/Resolved]
